FAERS Safety Report 10357802 (Version 2)
Quarter: 2014Q3

REPORT INFORMATION
  Report Type: Spontaneous
  Country: ES (occurrence: ES)
  Receive Date: 20140801
  Receipt Date: 20140801
  Transmission Date: 20150326
  Serious: Yes (Hospitalization, Other)
  Sender: FDA-Public Use
  Company Number: ES-BRISTOL-MYERS SQUIBB COMPANY-21160387

PATIENT
  Sex: Male

DRUGS (1)
  1. DASATINIB [Suspect]
     Active Substance: DASATINIB
     Indication: CHRONIC MYELOID LEUKAEMIA
     Dates: start: 201005

REACTIONS (13)
  - Adenoma benign [Unknown]
  - Cardiac failure chronic [Unknown]
  - Night sweats [Unknown]
  - Respiratory tract infection [Unknown]
  - Abdominal pain upper [Unknown]
  - Weight decreased [Unknown]
  - Colitis [Unknown]
  - Haemorrhagic erosive gastritis [Unknown]
  - Anaemia [Unknown]
  - Pulmonary arterial hypertension [Unknown]
  - Depression [Unknown]
  - Gastroenteritis [Unknown]
  - Hypertensive heart disease [Unknown]

NARRATIVE: CASE EVENT DATE: 201009
